FAERS Safety Report 16792778 (Version 1)
Quarter: 2019Q3

REPORT INFORMATION
  Report Type: Spontaneous
  Country: TJ (occurrence: TJ)
  Receive Date: 20190910
  Receipt Date: 20190910
  Transmission Date: 20191005
  Serious: Yes (Other)
  Sender: FDA-Public Use
  Company Number: PHHY2019TJ207144

PATIENT
  Age: 6 Year
  Sex: Female
  Weight: 19 kg

DRUGS (12)
  1. CLOFAZIMINE [Suspect]
     Active Substance: CLOFAZIMINE
     Indication: TUBERCULOSIS OF INTRATHORACIC LYMPH NODES
     Dosage: 50 MG, QD
     Route: 065
  2. DELAMANID [Suspect]
     Active Substance: DELAMANID
     Indication: TUBERCULOSIS
  3. MOXIFLOXACIN. [Suspect]
     Active Substance: MOXIFLOXACIN
     Indication: EXTRAPULMONARY TUBERCULOSIS
  4. MOXIFLOXACIN. [Suspect]
     Active Substance: MOXIFLOXACIN
     Indication: TUBERCULOSIS
  5. LINEZOLID. [Suspect]
     Active Substance: LINEZOLID
     Indication: TUBERCULOSIS OF INTRATHORACIC LYMPH NODES
     Dosage: 300 MG, QD
     Route: 065
     Dates: start: 20190706, end: 20190813
  6. LINEZOLID. [Suspect]
     Active Substance: LINEZOLID
     Indication: EXTRAPULMONARY TUBERCULOSIS
  7. DELAMANID [Suspect]
     Active Substance: DELAMANID
     Indication: EXTRAPULMONARY TUBERCULOSIS
  8. MOXIFLOXACIN. [Suspect]
     Active Substance: MOXIFLOXACIN
     Indication: TUBERCULOSIS OF INTRATHORACIC LYMPH NODES
     Dosage: 200 MG, QD
     Route: 065
     Dates: start: 20190706, end: 20190813
  9. CLOFAZIMINE [Suspect]
     Active Substance: CLOFAZIMINE
     Indication: TUBERCULOSIS
  10. CLOFAZIMINE [Suspect]
     Active Substance: CLOFAZIMINE
     Indication: EXTRAPULMONARY TUBERCULOSIS
  11. DELAMANID [Suspect]
     Active Substance: DELAMANID
     Indication: TUBERCULOSIS OF INTRATHORACIC LYMPH NODES
     Dosage: 50 MG, QD
     Route: 065
     Dates: start: 20190706, end: 20190813
  12. LINEZOLID. [Suspect]
     Active Substance: LINEZOLID
     Indication: TUBERCULOSIS

REACTIONS (7)
  - Nausea [Unknown]
  - Underdose [Unknown]
  - Phobia [Unknown]
  - Hyperhidrosis [Unknown]
  - Product use issue [Unknown]
  - Product use in unapproved indication [Unknown]
  - Hallucination, visual [Not Recovered/Not Resolved]

NARRATIVE: CASE EVENT DATE: 20190812
